FAERS Safety Report 6715866-X (Version None)
Quarter: 2010Q2

REPORT INFORMATION
  Report Type: 
  Country: None (occurrence: None)
  Receive Date: 20100507
  Receipt Date: 20100429
  Transmission Date: 20101027
  Serious: Yes (Hospitalization, Other)
  Sender: FDA-Public Use
  Company Number: US-AMGEN-QUU409434

PATIENT
  Age: 57 Year
  Sex: Female

DRUGS (1)
  1. SENSIPAR [Suspect]
     Indication: HYPERPARATHYROIDISM SECONDARY
     Dates: start: 20090101

REACTIONS (12)
  - ABDOMINAL PAIN UPPER [None]
  - BLOOD PARATHYROID HORMONE ABNORMAL [None]
  - BLOOD POTASSIUM INCREASED [None]
  - DIARRHOEA [None]
  - FEELING ABNORMAL [None]
  - LOSS OF CONSCIOUSNESS [None]
  - LOWER LIMB FRACTURE [None]
  - MALAISE [None]
  - PRESYNCOPE [None]
  - PRURITUS [None]
  - TREATMENT NONCOMPLIANCE [None]
  - VOMITING [None]
